FAERS Safety Report 9161352 (Version 1)
Quarter: 2013Q1

REPORT INFORMATION
  Report Type: Spontaneous
  Country: US (occurrence: US)
  Receive Date: 20130313
  Receipt Date: 20130313
  Transmission Date: 20140127
  Serious: No
  Sender: FDA-Public Use
  Company Number: US-009507513-1303USA005693

PATIENT
  Sex: Male

DRUGS (1)
  1. COPPERTONE KIDS WET + CLEAR CONTINUOUS SPRAY SPF 45 [Suspect]
     Indication: PRODUCT USED FOR UNKNOWN INDICATION
     Dosage: UNK, UNKNOWN
     Route: 061
     Dates: start: 201302

REACTIONS (5)
  - Eye irritation [Recovered/Resolved]
  - Lacrimation increased [Recovered/Resolved]
  - Photophobia [Recovered/Resolved]
  - Erythema [Recovered/Resolved]
  - Adverse reaction [Recovered/Resolved]
